FAERS Safety Report 19317652 (Version 3)
Quarter: 2022Q2

REPORT INFORMATION
  Report Type: Other
  Country: IT (occurrence: None)
  Receive Date: 20210527
  Receipt Date: 20220519
  Transmission Date: 20220720
  Serious: Yes (Other)
  Sender: FDA-Public Use
  Company Number: IT-ROCHE-2832218

PATIENT

DRUGS (2)
  1. RITUXIMAB [Suspect]
     Active Substance: RITUXIMAB
     Indication: Hairy cell leukaemia
     Route: 042
  2. VEMURAFENIB [Suspect]
     Active Substance: VEMURAFENIB
     Indication: Hairy cell leukaemia
     Route: 048

REACTIONS (11)
  - Neutropenia [Unknown]
  - Hyperbilirubinaemia [Unknown]
  - Pancreatic enzymes increased [Unknown]
  - Gamma-glutamyltransferase increased [Unknown]
  - Hypophosphataemia [Unknown]
  - Anaemia [Unknown]
  - Electrocardiogram QT prolonged [Unknown]
  - Malignant melanoma in situ [Unknown]
  - Basal cell carcinoma [Unknown]
  - Haemolysis [Unknown]
  - Blood alkaline phosphatase increased [Unknown]
